FAERS Safety Report 6131950-6 (Version None)
Quarter: 2009Q1

REPORT INFORMATION
  Report Type: 
  Country: None (occurrence: None)
  Receive Date: 20090325
  Receipt Date: 20090323
  Transmission Date: 20090719
  Serious: Yes (Hospitalization)
  Sender: FDA-Public Use
  Company Number: FR-WYE-G03374209

PATIENT
  Age: 79 Year
  Sex: Male

DRUGS (13)
  1. TORISEL [Suspect]
     Indication: RENAL CANCER
     Route: 042
     Dates: start: 20080501, end: 20081201
  2. KARDEGIC [Concomitant]
     Dosage: UNKNOWN
  3. TAHOR [Concomitant]
     Dosage: UNKNOWN
     Route: 048
  4. CARDENSIEL [Concomitant]
     Dosage: UNKNOWN
     Route: 048
  5. PERINDOPRIL ERBUMINE [Concomitant]
     Dosage: UNKNOWN
     Route: 048
  6. PARAFFIN, LIQUID [Concomitant]
     Dosage: UNKNOWN
     Route: 003
  7. DAFALGAN [Concomitant]
     Dosage: UNKNOWN
  8. OGAST [Concomitant]
     Dosage: UNKNOWN
     Route: 048
  9. IXPRIM [Concomitant]
     Dosage: UNKNOWN
     Route: 048
  10. GLYCEROL 2.6% [Concomitant]
     Dosage: UNKNOWN
     Route: 003
  11. PARAFFIN SOFT [Concomitant]
     Dosage: UNKNOWN
     Route: 003
  12. PREVISCAN [Concomitant]
     Dosage: UNKNOWN
     Route: 048
  13. LASIX [Concomitant]
     Dosage: UNKNOWN

REACTIONS (3)
  - ALVEOLITIS ALLERGIC [None]
  - BLOOD GLUCOSE INCREASED [None]
  - CONDITION AGGRAVATED [None]
